FAERS Safety Report 4630721-7 (Version None)
Quarter: 2005Q2

REPORT INFORMATION
  Report Type: 
  Country: None (occurrence: None)
  Receive Date: 20050406
  Receipt Date: 20050316
  Transmission Date: 20051028
  Serious: Yes (Other)
  Sender: FDA-Public Use
  Company Number: US_0502113328

PATIENT
  Age: 78 Year
  Sex: Male

DRUGS (7)
  1. CYMBALTA [Suspect]
     Indication: DEPRESSION
     Dosage: 30 MG
     Dates: end: 20050215
  2. PAXIL [Concomitant]
  3. METOPROLOL TARTRATE [Concomitant]
  4. ACETYLSALICYLIC ACID SRT [Concomitant]
  5. NEXIUM [Concomitant]
  6. CALCIUM GLUCONATE [Concomitant]
  7. LIPITOR [Concomitant]

REACTIONS (6)
  - BLOOD PRESSURE ORTHOSTATIC DECREASED [None]
  - DIZZINESS [None]
  - HEART RATE DECREASED [None]
  - HYPOTENSION [None]
  - LOSS OF CONSCIOUSNESS [None]
  - SYNCOPE [None]
